FAERS Safety Report 10334736 (Version 1)
Quarter: 2014Q3

REPORT INFORMATION
  Report Type: Spontaneous
  Country: US (occurrence: None)
  Receive Date: 20140722
  Receipt Date: 20140722
  Transmission Date: 20150326
  Serious: Yes (Death)
  Sender: FDA-Public Use
  Company Number: None

PATIENT
  Age: 88 Year
  Sex: Male
  Weight: 81.65 kg

DRUGS (1)
  1. NARCAN [Suspect]
     Active Substance: NALOXONE HYDROCHLORIDE
     Indication: RESPIRATORY DISORDER
     Dosage: .4 MG OR 1 MG ONCE BY IV
     Route: 042
     Dates: start: 20140203

REACTIONS (6)
  - Pain [None]
  - Incorrect dose administered [None]
  - Bradycardia [None]
  - Tachycardia [None]
  - Cardiac arrest [None]
  - Screaming [None]
